FAERS Safety Report 14296285 (Version 1)
Quarter: 2017Q4

REPORT INFORMATION
  Report Type: Spontaneous
  Country: ES (occurrence: ES)
  Receive Date: 20171218
  Receipt Date: 20171218
  Transmission Date: 20180321
  Serious: Yes (Other)
  Sender: FDA-Public Use
  Company Number: PHHY2017ES182812

PATIENT
  Age: 75 Year
  Sex: Male

DRUGS (2)
  1. TACROLIMUS. [Suspect]
     Active Substance: TACROLIMUS
     Indication: RENAL TRANSPLANT
     Dosage: UNK
     Route: 065
     Dates: start: 2013
  2. TACROLIMUS. [Suspect]
     Active Substance: TACROLIMUS
     Indication: IMMUNOSUPPRESSANT DRUG THERAPY

REACTIONS (8)
  - Eye haemorrhage [Unknown]
  - Hyperaemia [Unknown]
  - Vision blurred [Unknown]
  - Pupillary reflex impaired [Unknown]
  - Papilloedema [Unknown]
  - Optic neuropathy [Unknown]
  - Optic atrophy [Unknown]
  - Blindness [Unknown]
